FAERS Safety Report 14713996 (Version 2)
Quarter: 2018Q3

REPORT INFORMATION
  Report Type: Spontaneous
  Country: FR (occurrence: FR)
  Receive Date: 20180404
  Receipt Date: 20180804
  Transmission Date: 20181010
  Serious: Yes (Hospitalization)
  Sender: FDA-Public Use
  Company Number: FR-AUROBINDO-AUR-APL-2018-017108

PATIENT
  Age: 87 Year
  Sex: Female

DRUGS (3)
  1. BUDESONIDE. [Suspect]
     Active Substance: BUDESONIDE
     Indication: WHEEZING
     Dosage: UNK
     Route: 055
     Dates: start: 20180306
  2. IPRATROPIUM [Suspect]
     Active Substance: IPRATROPIUM
     Indication: WHEEZING
     Dosage: (3)
     Route: 055
     Dates: start: 20180306
  3. CEFTRIAXONE 1G/10 ML [Suspect]
     Active Substance: CEFTRIAXONE
     Indication: ANTIBIOTIC PROPHYLAXIS
     Route: 042
     Dates: start: 20180305, end: 20180313

REACTIONS (4)
  - Macule [Recovered/Resolved]
  - Rash papular [Recovered/Resolved]
  - Aphthous ulcer [Recovered/Resolved]
  - Pruritus [Recovered/Resolved]

NARRATIVE: CASE EVENT DATE: 20180307
